FAERS Safety Report 9274730 (Version 2)
Quarter: 2013Q3

REPORT INFORMATION
  Report Type: Spontaneous
  Country: US (occurrence: None)
  Receive Date: 20130429
  Receipt Date: 20130701
  Transmission Date: 20140515
  Serious: Yes (Other)
  Sender: FDA-Public Use
  Company Number: ACO_35662_2013

PATIENT
  Age: 38 Year
  Sex: Female

DRUGS (1)
  1. AMPYRA [Suspect]
     Indication: GAIT DISTURBANCE
     Dates: start: 201202

REACTIONS (4)
  - Ankle fracture [None]
  - Femur fracture [None]
  - Fall [None]
  - Medication error [None]
